FAERS Safety Report 24137025 (Version 2)
Quarter: 2024Q3

REPORT INFORMATION
  Report Type: Spontaneous
  Country: US (occurrence: US)
  Receive Date: 20240725
  Receipt Date: 20240806
  Transmission Date: 20241016
  Serious: No
  Sender: BIOVITRUM
  Company Number: US-BIOVITRUM-2024-US-010211

PATIENT
  Age: 24 Month
  Sex: Female

DRUGS (1)
  1. KINERET [Suspect]
     Active Substance: ANAKINRA
     Indication: Product used for unknown indication
     Dosage: DAILY
     Route: 065

REACTIONS (3)
  - Injection site pain [Unknown]
  - Product use complaint [Unknown]
  - Syringe issue [Unknown]
